FAERS Safety Report 9070854 (Version 1)
Quarter: 2013Q1

REPORT INFORMATION
  Report Type: Spontaneous
  Country: US (occurrence: US)
  Receive Date: 20130206
  Receipt Date: 20130206
  Transmission Date: 20140127
  Serious: No
  Sender: FDA-Public Use
  Company Number: US-ALLERGAN-1206177US

PATIENT
  Age: 71 Year
  Sex: Female

DRUGS (5)
  1. RESTASIS? [Suspect]
     Indication: DRY EYE
     Dosage: 2 GTT, BID
     Route: 047
     Dates: start: 201204
  2. RESTASIS? [Suspect]
     Dosage: UNK
     Route: 047
  3. REFRESH TEARS [Concomitant]
     Indication: DRY EYE
  4. PREDNISONE [Concomitant]
     Indication: PRODUCT USED FOR UNKNOWN INDICATION
     Dosage: 4 MG, UNK
  5. LEVOXYL [Concomitant]
     Indication: HYPOTHYROIDISM
     Dosage: 75 MG, UNK

REACTIONS (3)
  - Eye irritation [Unknown]
  - Instillation site dryness [Not Recovered/Not Resolved]
  - Dry eye [Not Recovered/Not Resolved]
